FAERS Safety Report 14303166 (Version 1)
Quarter: 2017Q4

REPORT INFORMATION
  Report Type: Report from Study
  Country: NL (occurrence: NL)
  Receive Date: 20171219
  Receipt Date: 20171219
  Transmission Date: 20180321
  Serious: Yes (Hospitalization)
  Sender: FDA-Public Use
  Company Number: NL-BAYER-2017-239313

PATIENT
  Sex: Male

DRUGS (12)
  1. OXYCODON [Concomitant]
     Active Substance: OXYCODONE
     Dosage: 2DD10MG
  2. PANTOPRAZOLE [Concomitant]
     Active Substance: PANTOPRAZOLE
     Dosage: 1DD40MG
  3. RADIUM-223 [Suspect]
     Active Substance: RADIUM RA-223 DICHLORIDE
     Indication: HORMONE-REFRACTORY PROSTATE CANCER
     Dosage: DAILY DOSE 5.6 MBQ
     Route: 042
  4. RADIUM-223 [Suspect]
     Active Substance: RADIUM RA-223 DICHLORIDE
     Indication: HORMONE-REFRACTORY PROSTATE CANCER
     Dosage: DAILY DOSE 5.32 MBQ
     Route: 042
  5. RADIUM-223 [Suspect]
     Active Substance: RADIUM RA-223 DICHLORIDE
     Indication: HORMONE-REFRACTORY PROSTATE CANCER
     Dosage: DAILY DOSE 5.5 MBQ
     Route: 042
     Dates: start: 20170215
  6. MACROGOL [Concomitant]
     Active Substance: POLYETHYLENE GLYCOLS
     Dosage: 1DD1
  7. PREDNISON [Concomitant]
     Active Substance: PREDNISONE
     Dosage: 1DD10MG
  8. SALBUTAMOL [Concomitant]
     Active Substance: ALBUTEROL
  9. OXYCODON [Concomitant]
     Active Substance: OXYCODONE
     Dosage: 3DD5MG
  10. RADIUM-223 [Suspect]
     Active Substance: RADIUM RA-223 DICHLORIDE
     Indication: HORMONE-REFRACTORY PROSTATE CANCER
     Dosage: DAILY DOSE 4.6 MBQ
     Route: 042
     Dates: start: 20170510, end: 20170510
  11. METOCLOPRAMIDE. [Concomitant]
     Active Substance: METOCLOPRAMIDE
     Dosage: 3DD10MG
  12. DEXAMETHASON [DEXAMETHASONE] [Concomitant]

REACTIONS (3)
  - Dehydration [Recovered/Resolved]
  - Acute kidney injury [Recovered/Resolved]
  - Nausea [Recovered/Resolved]
